FAERS Safety Report 6533939-1 (Version None)
Quarter: 2010Q1

REPORT INFORMATION
  Report Type: 
  Country: None (occurrence: None)
  Receive Date: 20100112
  Receipt Date: 20100105
  Transmission Date: 20100710
  Serious: Yes (Hospitalization, Other)
  Sender: FDA-Public Use
  Company Number: US-BIOGENIDEC-2008BI009351

PATIENT
  Age: 51 Year
  Sex: Male
  Weight: 98 kg

DRUGS (1)
  1. TYSABRI [Suspect]
     Indication: MULTIPLE SCLEROSIS
     Route: 042
     Dates: start: 20060912, end: 20080403

REACTIONS (6)
  - BACK PAIN [None]
  - ENCEPHALITIS [None]
  - MENINGITIS HERPES [None]
  - OPTIC NEURITIS [None]
  - RENAL FAILURE [None]
  - RETINITIS VIRAL [None]
